FAERS Safety Report 9805558 (Version 1)
Quarter: 2014Q1

REPORT INFORMATION
  Report Type: Spontaneous
  Country: AU (occurrence: AU)
  Receive Date: 20140109
  Receipt Date: 20140109
  Transmission Date: 20141002
  Serious: Yes (Congenital Anomaly, Other)
  Sender: FDA-Public Use
  Company Number: AU-ELI_LILLY_AND_COMPANY-AU201401001421

PATIENT
  Sex: 0

DRUGS (1)
  1. PROZAC [Suspect]
     Indication: DEPRESSION
     Dosage: 20 MG, QD
     Route: 064

REACTIONS (3)
  - Anencephaly [Unknown]
  - Ectopia cordis [Unknown]
  - Foetal exposure during pregnancy [Recovered/Resolved]
